FAERS Safety Report 4775379-1 (Version None)
Quarter: 2005Q3

REPORT INFORMATION
  Report Type: 
  Country: None (occurrence: None)
  Receive Date: 20050920
  Receipt Date: 20050906
  Transmission Date: 20060218
  Serious: Yes (Other)
  Sender: FDA-Public Use
  Company Number: 200513433BCC

PATIENT
  Age: 70 Year
  Sex: Female
  Weight: 90.7194 kg

DRUGS (13)
  1. ALKA-MINTS (CALCIUM CARBONATE) [Suspect]
     Indication: DYSPEPSIA
     Dosage: IRR, ORAL
     Route: 048
     Dates: start: 19970101
  2. ALKA-MINTS (CALCIUM CARBONATE) [Suspect]
     Indication: PAIN
     Dosage: IRR, ORAL
     Route: 048
     Dates: start: 19970101
  3. AMBIEN [Concomitant]
  4. FAMOTIDINE [Concomitant]
  5. NORETHINDRONE ACETATE [Concomitant]
  6. POTASSIUM CHLORIDE [Concomitant]
  7. SYNTHROID [Concomitant]
  8. METOPROLOL [Concomitant]
  9. WARFARIN SODIUM [Concomitant]
  10. GABAPETIN [Concomitant]
  11. MULTIVITAMIN AND MINERAL SUPPLEMENT [Concomitant]
  12. TYLENOL (CAPLET) [Concomitant]
  13. ASPIRIN [Suspect]

REACTIONS (9)
  - ANAESTHETIC COMPLICATION [None]
  - CARDIAC PERFORATION [None]
  - CARDIAC VALVE DISEASE [None]
  - DIALYSIS [None]
  - DRUG INEFFECTIVE [None]
  - INTESTINAL HAEMORRHAGE [None]
  - RENAL FAILURE [None]
  - UTERINE NEOPLASM [None]
  - UTERINE POLYP [None]
